FAERS Safety Report 9100117 (Version 1)
Quarter: 2013Q1

REPORT INFORMATION
  Report Type: Report from Study
  Country: US (occurrence: US)
  Receive Date: 20130215
  Receipt Date: 20130215
  Transmission Date: 20140127
  Serious: Yes (Other)
  Sender: FDA-Public Use
  Company Number: US-VERTEX PHARMACEUTICALS INC.-2013-002208

PATIENT
  Age: 32 Year
  Sex: Female

DRUGS (4)
  1. INCIVEK [Suspect]
     Indication: HEPATITIS C
     Route: 065
  2. INCIVEK [Suspect]
     Route: 065
  3. RIBAVIRIN [Suspect]
     Indication: HEPATITIS C
     Dosage: DOSAGE FORM: UNSPECIFIED
     Route: 065
  4. PEG INTERFERON [Suspect]
     Indication: HEPATITIS C
     Dosage: DOSAGE FORM: UNSPECIFIED
     Route: 065

REACTIONS (5)
  - Anaemia [Unknown]
  - Irritable bowel syndrome [Unknown]
  - Decreased appetite [Unknown]
  - Weight decreased [Unknown]
  - Diarrhoea [Unknown]
